FAERS Safety Report 10490713 (Version 1)
Quarter: 2014Q4

REPORT INFORMATION
  Report Type: Spontaneous
  Country: JP (occurrence: JP)
  Receive Date: 20141002
  Receipt Date: 20141002
  Transmission Date: 20150528
  Serious: Yes (Other)
  Sender: FDA-Public Use
  Company Number: JP-BAUSCH-BL-2014-006016

PATIENT
  Age: 66 Year
  Sex: Male

DRUGS (2)
  1. VALACICLOVIR HYDROCHLORIDE [Suspect]
     Active Substance: VALACYCLOVIR HYDROCHLORIDE
     Indication: ORAL HERPES
     Dates: start: 20130830
  2. TALION [Suspect]
     Active Substance: BEPOTASTINE
     Indication: RASH GENERALISED
     Route: 048
     Dates: start: 20130830

REACTIONS (1)
  - Glomerulonephritis membranous [Recovering/Resolving]

NARRATIVE: CASE EVENT DATE: 20130903
